FAERS Safety Report 25816895 (Version 1)
Quarter: 2025Q3

REPORT INFORMATION
  Report Type: Spontaneous
  Country: US (occurrence: None)
  Receive Date: 20250917
  Receipt Date: 20250917
  Transmission Date: 20251020
  Serious: Yes (Hospitalization)
  Sender: FDA-CTU
  Company Number: None

PATIENT
  Sex: Male

DRUGS (11)
  1. AMBRISENTAN [Suspect]
     Active Substance: AMBRISENTAN
     Indication: Pulmonary arterial hypertension
     Dates: start: 20250625
  2. CALCIUM GARB TAB 1250MG [Concomitant]
  3. ELECARE POW [Concomitant]
  4. FUROSEMIDE INJ 10MG/ML [Concomitant]
  5. GABAPENTIN [Concomitant]
     Active Substance: GABAPENTIN
  6. HYDROCHLOROT CAP 12.5MG [Concomitant]
  7. IBUPROFEN DRO 50/1.25 [Concomitant]
  8. MIRALAX POW 3350 NF [Concomitant]
  9. NOURISH PEP LIQ [Concomitant]
  10. OMEPRAZOLE TAB 20MG [Concomitant]
  11. SPIRONOLACT TAB 25MG [Concomitant]

REACTIONS (2)
  - Therapy interrupted [None]
  - Fall [None]
